FAERS Safety Report 4861868-8 (Version None)
Quarter: 2005Q4

REPORT INFORMATION
  Report Type: 
  Country: None (occurrence: None)
  Receive Date: 20051130
  Receipt Date: 20050221
  Transmission Date: 20060501
  Serious: Yes (Hospitalization, Other)
  Sender: FDA-Public Use
  Company Number: 2004242243US

PATIENT
  Age: 77 Year
  Sex: Male

DRUGS (10)
  1. ZYVOX [Suspect]
     Indication: STAPHYLOCOCCAL INFECTION
     Dosage: 1200 MG (600 MG, TWICE DAILY), ORAL
     Route: 048
     Dates: start: 20040929, end: 20041015
  2. AMIODARONE HCL [Concomitant]
  3. FUROSEMIDE [Concomitant]
  4. VALSARTAN [Concomitant]
  5. AMLODIPINE BESYLATE [Concomitant]
  6. CILOSTAZOL [Concomitant]
  7. OCUVITE (ASCORBIC ACID, RETINOL, TOCOPHEROL) [Concomitant]
  8. WARFARIN SODIUM [Concomitant]
  9. FENOFIBRATE [Concomitant]
  10. ASPIRIN [Concomitant]

REACTIONS (2)
  - ANAEMIA [None]
  - MALAISE [None]
